FAERS Safety Report 12073656 (Version 2)
Quarter: 2016Q1

REPORT INFORMATION
  Report Type: Spontaneous
  Country: ZA (occurrence: ZA)
  Receive Date: 20160212
  Receipt Date: 20160304
  Transmission Date: 20160526
  Serious: Yes (Hospitalization)
  Sender: FDA-Public Use
  Company Number: ZA-PFIZER INC-2016080273

PATIENT
  Age: 65 Year
  Sex: Female

DRUGS (2)
  1. CELEBREX [Suspect]
     Active Substance: CELECOXIB
     Indication: SYSTEMIC LUPUS ERYTHEMATOSUS
     Dosage: 200 MG, UNK
     Route: 048
     Dates: start: 2009, end: 20160202
  2. CELEBREX [Suspect]
     Active Substance: CELECOXIB
     Dosage: 100 MG, UNK
     Route: 048
     Dates: start: 20160203

REACTIONS (1)
  - Rectocele [Unknown]
